FAERS Safety Report 16935660 (Version 1)
Quarter: 2019Q4

REPORT INFORMATION
  Report Type: Spontaneous
  Country: US (occurrence: US)
  Receive Date: 20191018
  Receipt Date: 20191018
  Transmission Date: 20200122
  Serious: No
  Sender: FDA-Public Use
  Company Number: US-SA-2019SA288420

PATIENT
  Age: 52 Year
  Sex: Female

DRUGS (19)
  1. DUPIXENT [Suspect]
     Active Substance: DUPILUMAB
     Indication: DERMATITIS ATOPIC
     Dosage: 300 MG, QOW
     Route: 058
     Dates: start: 20190912, end: 2019
  2. ZOFRAN [Concomitant]
     Active Substance: ONDANSETRON HYDROCHLORIDE
  3. NABUMETONE. [Concomitant]
     Active Substance: NABUMETONE
  4. BUSPAR [Concomitant]
     Active Substance: BUSPIRONE HYDROCHLORIDE
  5. NEXIUM I.V. [Concomitant]
     Active Substance: ESOMEPRAZOLE SODIUM
  6. DUPIXENT [Suspect]
     Active Substance: DUPILUMAB
     Dosage: 600 MG, 1X
     Route: 058
     Dates: start: 20191001, end: 20191001
  7. ZYRTEC [Concomitant]
     Active Substance: CETIRIZINE HYDROCHLORIDE
  8. AMITIZA [Concomitant]
     Active Substance: LUBIPROSTONE
  9. TOPIRAMATE. [Concomitant]
     Active Substance: TOPIRAMATE
  10. CRESTOR [Concomitant]
     Active Substance: ROSUVASTATIN CALCIUM
  11. HYDROCORT [HYDROCORTISONE ACETATE] [Concomitant]
  12. AMBIEN [Concomitant]
     Active Substance: ZOLPIDEM TARTRATE
  13. DESOXIMETASONE. [Concomitant]
     Active Substance: DESOXIMETASONE
  14. DEXILANT [Concomitant]
     Active Substance: DEXLANSOPRAZOLE
  15. CYMBALTA [Concomitant]
     Active Substance: DULOXETINE HYDROCHLORIDE
  16. ZENPEP [Concomitant]
     Active Substance: PANCRELIPASE AMYLASE\PANCRELIPASE LIPASE\PANCRELIPASE PROTEASE
  17. TYLENOL COLD [CHLORPHENAMINE MALEATE;PARACETAMOL;PSEUDOEPHEDRINE HYDRO [Concomitant]
  18. METOPROLOL. [Concomitant]
     Active Substance: METOPROLOL
  19. RIZATRIPTAN BENZOATE. [Concomitant]
     Active Substance: RIZATRIPTAN BENZOATE

REACTIONS (1)
  - Wrong dose [Unknown]

NARRATIVE: CASE EVENT DATE: 20191001
